FAERS Safety Report 5753959-4 (Version None)
Quarter: 2008Q2

REPORT INFORMATION
  Report Type: 
  Country: None (occurrence: None)
  Receive Date: 20080527
  Receipt Date: 20080513
  Transmission Date: 20081010
  Serious: Yes (Death)
  Sender: FDA-Public Use
  Company Number: VISP-GE-0805S-0276

PATIENT
  Sex: Female

DRUGS (1)
  1. VISIPAQUE [Suspect]
     Indication: DRUG USE FOR UNKNOWN INDICATION
     Dosage: 75 ML, SINGLE DOSE

REACTIONS (3)
  - MULTI-ORGAN FAILURE [None]
  - NEPHROTIC SYNDROME [None]
  - SEPSIS [None]
